FAERS Safety Report 15118717 (Version 1)
Quarter: 2018Q3

REPORT INFORMATION
  Report Type: Spontaneous
  Country: CA (occurrence: CA)
  Receive Date: 20180709
  Receipt Date: 20180709
  Transmission Date: 20181010
  Serious: Yes (Other)
  Sender: FDA-Public Use
  Company Number: CA-ROCHE-2150817

PATIENT
  Age: 70 Year
  Sex: Female

DRUGS (8)
  1. ATORVASTATIN [Concomitant]
     Active Substance: ATORVASTATIN
     Route: 065
  2. SALMETEROL [Concomitant]
     Active Substance: SALMETEROL
     Route: 065
  3. GANCICLOVIR. [Concomitant]
     Active Substance: GANCICLOVIR
     Route: 065
  4. BENDAMUSTINE HYDROCHLORIDE. [Suspect]
     Active Substance: BENDAMUSTINE HYDROCHLORIDE
     Indication: B-CELL LYMPHOMA
     Route: 065
  5. PREDNISONE. [Suspect]
     Active Substance: PREDNISONE
     Indication: ASTHMA
     Route: 048
  6. CICLESONIDE [Suspect]
     Active Substance: CICLESONIDE
     Indication: PRODUCT USED FOR UNKNOWN INDICATION
     Route: 065
  7. VENTOLIN [Concomitant]
     Active Substance: ALBUTEROL SULFATE
     Route: 065
  8. RITUXIMAB. [Suspect]
     Active Substance: RITUXIMAB
     Indication: B-CELL LYMPHOMA
     Route: 065

REACTIONS (14)
  - Pancreatitis [Recovered/Resolved]
  - Peroneal nerve injury [Recovered/Resolved]
  - Varicella zoster oesophagitis [Recovered/Resolved]
  - Delirium [Recovered/Resolved]
  - Gastric ulcer [Recovered/Resolved]
  - Post herpetic neuralgia [Recovered/Resolved]
  - Varicella zoster virus infection [Recovered/Resolved]
  - Herpes zoster disseminated [Recovered/Resolved]
  - Hypophagia [Recovered/Resolved]
  - Oesophageal ulcer [Recovered/Resolved]
  - Bile duct stenosis [Recovered/Resolved]
  - Peroneal nerve palsy [Recovered/Resolved]
  - Varicella zoster gastritis [Recovered/Resolved]
  - Abdominal pain [Recovered/Resolved]
